FAERS Safety Report 8327915 (Version 3)
Quarter: 2014Q1

REPORT INFORMATION
  Report Type: Spontaneous
  Country: US (occurrence: US)
  Receive Date: 20120109
  Receipt Date: 20140127
  Transmission Date: 20141002
  Serious: Yes (Hospitalization, Other)
  Sender: FDA-Public Use
  Company Number: US-ELI_LILLY_AND_COMPANY-US201201000448

PATIENT
  Age: 60 Year
  Sex: Female
  Weight: 97 kg

DRUGS (4)
  1. CYMBALTA [Suspect]
     Indication: PAIN
     Dosage: 60 MG, QD
     Dates: start: 201109
  2. CYMBALTA [Suspect]
     Indication: CARTILAGE ATROPHY
     Dosage: 60 MG, QD
     Route: 065
     Dates: start: 201312
  3. SIMVASTATIN [Concomitant]
  4. MILNACIPRAN HYDROCHLORIDE [Concomitant]

REACTIONS (24)
  - Loss of consciousness [Unknown]
  - Head injury [Unknown]
  - Suicidal ideation [Unknown]
  - Fall [Unknown]
  - Weight increased [Unknown]
  - Hypersomnia [Unknown]
  - Muscle atrophy [Unknown]
  - Tremor [Unknown]
  - Hypokinesia [Unknown]
  - Inflammation [Not Recovered/Not Resolved]
  - Malaise [Unknown]
  - Amnesia [Unknown]
  - Depression [Unknown]
  - Dehydration [Unknown]
  - Weight decreased [Recovered/Resolved]
  - Cold sweat [Unknown]
  - Disorientation [Unknown]
  - Pain [Not Recovered/Not Resolved]
  - Apathy [Unknown]
  - Headache [Unknown]
  - Gait disturbance [Unknown]
  - Fatigue [Unknown]
  - Dizziness [Unknown]
  - Drug withdrawal syndrome [Unknown]
